FAERS Safety Report 7725226-0 (Version None)
Quarter: 2011Q3

REPORT INFORMATION
  Report Type: 
  Country: None (occurrence: None)
  Receive Date: 20110901
  Receipt Date: 20110824
  Transmission Date: 20111222
  Serious: Yes (Other)
  Sender: FDA-Public Use
  Company Number: AU-AMGEN-AUSSP2011025612

PATIENT
  Age: 49 Year
  Sex: Female
  Weight: 72 kg

DRUGS (2)
  1. NPLATE [Suspect]
     Indication: IDIOPATHIC THROMBOCYTOPENIC PURPURA
     Dosage: 288 MUG, UNK
     Dates: start: 20110811
  2. NPLATE [Suspect]
     Dosage: 4 MUG/KG, UNK
     Dates: start: 20100415

REACTIONS (2)
  - PLATELET COUNT INCREASED [None]
  - PLATELET COUNT DECREASED [None]
